FAERS Safety Report 19216696 (Version 1)
Quarter: 2021Q2

REPORT INFORMATION
  Report Type: Spontaneous
  Country: US (occurrence: US)
  Receive Date: 20210504
  Receipt Date: 20210504
  Transmission Date: 20210717
  Serious: Yes (Hospitalization)
  Sender: FDA-Public Use
  Company Number: None

PATIENT
  Sex: Female

DRUGS (3)
  1. CIMZIA [Suspect]
     Active Substance: CERTOLIZUMAB PEGOL
     Indication: ARTHROPATHY
     Route: 058
     Dates: start: 20191012
  2. LOVENOX INJ [Concomitant]
  3. PRENATAL [Suspect]
     Active Substance: VITAMINS

REACTIONS (2)
  - Maternal exposure during pregnancy [None]
  - Hyperemesis gravidarum [None]
